FAERS Safety Report 9143719 (Version 1)
Quarter: 2013Q1

REPORT INFORMATION
  Report Type: Other
  Country: IT (occurrence: IT)
  Receive Date: 20130306
  Receipt Date: 20130306
  Transmission Date: 20140127
  Serious: Yes (Other)
  Sender: FDA-Public Use
  Company Number: IT-BRISTOL-MYERS SQUIBB COMPANY-17416660

PATIENT
  Age: 60 Year
  Sex: Female

DRUGS (2)
  1. CISPLATIN [Suspect]
     Indication: SMALL CELL LUNG CANCER
  2. ETOPOSIDE [Suspect]
     Indication: SMALL CELL LUNG CANCER

REACTIONS (1)
  - Inappropriate antidiuretic hormone secretion [Recovered/Resolved]
